FAERS Safety Report 8024312-8 (Version None)
Quarter: 2011Q4

REPORT INFORMATION
  Report Type: 
  Country: None (occurrence: None)
  Receive Date: 20111130
  Receipt Date: 20110906
  Transmission Date: 20120403
  Serious: Yes (Other)
  Sender: FDA-Public Use
  Company Number: 334541

PATIENT
  Age: 49 Year
  Sex: Male
  Weight: 63.05 kg

DRUGS (2)
  1. NOVOLOG [Suspect]
     Indication: TYPE 1 DIABETES MELLITUS
     Dosage: 5 U, QAM, SUBCUTANEOUS
     Route: 058
     Dates: start: 20020101
  2. LANTUS [Concomitant]

REACTIONS (1)
  - BLOOD GLUCOSE DECREASED [None]
